FAERS Safety Report 4399781-5 (Version None)
Quarter: 2004Q3

REPORT INFORMATION
  Report Type: 
  Country: None (occurrence: None)
  Receive Date: 20040714
  Receipt Date: 20040630
  Transmission Date: 20050211
  Serious: Yes (Other)
  Sender: FDA-Public Use
  Company Number: FR-JNJFOC-20040400627

PATIENT
  Age: 77 Year
  Sex: Male

DRUGS (2)
  1. REMICADE [Suspect]
     Indication: BEHCET'S SYNDROME
     Dosage: INTRAVENOUS
     Route: 042
  2. REMICADE [Suspect]
     Indication: UVEITIS
     Dosage: INTRAVENOUS
     Route: 042

REACTIONS (5)
  - GLOMERULONEPHRITIS PROLIFERATIVE [None]
  - HAEMATURIA [None]
  - RELAPSING POLYCHONDRITIS [None]
  - RENAL FAILURE ACUTE [None]
  - RENAL VASCULITIS [None]
